FAERS Safety Report 16056136 (Version 1)
Quarter: 2019Q2

REPORT INFORMATION
  Report Type: Spontaneous
  Country: US (occurrence: US)
  Receive Date: 20190308
  Receipt Date: 20190308
  Transmission Date: 20190711
  Serious: Yes (Other)
  Sender: FDA-Public Use
  Company Number: None

PATIENT
  Age: 52 Year
  Sex: Female
  Weight: 63 kg

DRUGS (1)
  1. TRIAMCINOLONE ACETONIDE. [Suspect]
     Active Substance: TRIAMCINOLONE ACETONIDE
     Indication: BACK PAIN
     Dosage: ?          QUANTITY:80 ML;OTHER FREQUENCY:ONE TIME INJECTION;?
     Route: 008
     Dates: start: 20190218, end: 20190218

REACTIONS (7)
  - Blood pressure increased [None]
  - Headache [None]
  - Flushing [None]
  - Insomnia [None]
  - Ear disorder [None]
  - Disturbance in attention [None]
  - Agitation [None]

NARRATIVE: CASE EVENT DATE: 20190225
